FAERS Safety Report 19274079 (Version 2)
Quarter: 2022Q3

REPORT INFORMATION
  Report Type: Spontaneous
  Country: US (occurrence: US)
  Receive Date: 20210519
  Receipt Date: 20220714
  Transmission Date: 20221027
  Serious: Yes (Other)
  Sender: FDA-Public Use
  Company Number: US-SA-2020SA173844

PATIENT
  Age: 72 Year
  Sex: Female

DRUGS (3)
  1. DUPIXENT [Suspect]
     Active Substance: DUPILUMAB
     Indication: Dermatitis atopic
     Dosage: 300 MG, QOW
     Route: 058
  2. DUPIXENT [Suspect]
     Active Substance: DUPILUMAB
     Indication: Dermatitis atopic
     Dosage: 300 MG, QOW
     Route: 058
  3. DUPIXENT [Suspect]
     Active Substance: DUPILUMAB
     Dosage: 300 UNK
     Route: 058
     Dates: start: 202104

REACTIONS (11)
  - Gastrointestinal obstruction [Unknown]
  - Internal haemorrhage [Unknown]
  - Injection site pain [Unknown]
  - Device issue [Unknown]
  - Injection site pain [Unknown]
  - Fibrosis [Unknown]
  - Osteoporosis [Unknown]
  - Pain [Unknown]
  - Arthritis [Unknown]
  - Pruritus [Unknown]
  - Unevaluable event [Unknown]
